FAERS Safety Report 14558216 (Version 1)
Quarter: 2018Q1

REPORT INFORMATION
  Report Type: Spontaneous
  Country: US (occurrence: US)
  Receive Date: 20180221
  Receipt Date: 20180221
  Transmission Date: 20180509
  Serious: No
  Sender: FDA-Public Use
  Company Number: US-PERRIGO-17US003612

PATIENT
  Age: 71 Year
  Sex: Male
  Weight: 77.98 kg

DRUGS (4)
  1. LOPERAMIDE HYDROCHLORIDE. [Suspect]
     Active Substance: LOPERAMIDE HYDROCHLORIDE
     Indication: DIARRHOEA
     Dosage: 4 MG, SINGLE
     Route: 048
     Dates: start: 20170423, end: 20170423
  2. TOLAZOLIN [Concomitant]
     Indication: BLOOD CHOLESTEROL INCREASED
     Dosage: 100 MG, BID
     Route: 048
     Dates: start: 2012
  3. MULTIVITAMIN [Concomitant]
     Active Substance: VITAMINS
     Indication: SUPPLEMENTATION THERAPY
     Dosage: ONE TABLET, QD
     Route: 048
     Dates: start: 2012
  4. ATORVASTATIN [Concomitant]
     Active Substance: ATORVASTATIN
     Indication: ANTICOAGULANT THERAPY
     Dosage: ONE TABLET, QD
     Route: 048
     Dates: start: 2012

REACTIONS (3)
  - Constipation [Recovered/Resolved]
  - Wrong technique in product usage process [Recovered/Resolved]
  - Abdominal distension [Recovered/Resolved]

NARRATIVE: CASE EVENT DATE: 20170423
